FAERS Safety Report 8080273-7 (Version None)
Quarter: 2012Q1

REPORT INFORMATION
  Report Type: 
  Country: None (occurrence: None)
  Receive Date: 20120130
  Receipt Date: 20111207
  Transmission Date: 20120608
  Serious: Yes (Other)
  Sender: FDA-Public Use
  Company Number: FR-JNJFOC-20111203543

PATIENT
  Sex: Female

DRUGS (8)
  1. NOZINAN [Suspect]
     Indication: PRODUCT USED FOR UNKNOWN INDICATION
     Route: 048
  2. LOXAPINE HCL [Suspect]
     Indication: PRODUCT USED FOR UNKNOWN INDICATION
     Dosage: 25 TO 50 GTT 3 OR 4 TIMES A DAY
     Route: 048
     Dates: start: 20010220
  3. TEGRETOL [Concomitant]
     Dosage: WITHDRAWN BEFORE 23-JUN-2009 (20 WEEKS OF AMENORRHEA)
     Route: 065
     Dates: start: 20090220
  4. LEPTICUR [Suspect]
     Indication: PRODUCT USED FOR UNKNOWN INDICATION
     Route: 048
     Dates: start: 20090220
  5. CHLORPROMAZINE HCL [Suspect]
     Indication: PRODUCT USED FOR UNKNOWN INDICATION
     Dosage: WITHDRAWN BEFORE 28-AUG-2009 (30 WEEKS OF AMENORRHEA)
     Route: 065
     Dates: start: 20090623
  6. DEPAKOTE [Concomitant]
     Route: 065
  7. HALDOL [Suspect]
     Indication: PRODUCT USED FOR UNKNOWN INDICATION
     Route: 065
  8. CLONAZEPAM [Suspect]
     Indication: PRODUCT USED FOR UNKNOWN INDICATION
     Dosage: WITHDRAWN BEFORE 28-AUG-2009 (30 WEEKS OF AMENORRHEA)
     Route: 065
     Dates: start: 20090623

REACTIONS (2)
  - FOETAL DEATH [None]
  - MATERNAL EXPOSURE DURING PREGNANCY [None]
